FAERS Safety Report 10147038 (Version 1)
Quarter: 2014Q2

REPORT INFORMATION
  Report Type: Spontaneous
  Country: FR (occurrence: FR)
  Receive Date: 20140501
  Receipt Date: 20140501
  Transmission Date: 20141212
  Serious: Yes (Hospitalization)
  Sender: FDA-Public Use
  Company Number: FR-ELI_LILLY_AND_COMPANY-FR201404007184

PATIENT
  Age: 90 Year
  Sex: Male

DRUGS (11)
  1. CYMBALTA [Suspect]
     Indication: PRODUCT USED FOR UNKNOWN INDICATION
     Dosage: 1 DF, UNKNOWN
     Route: 048
     Dates: start: 20140216
  2. PREVISCAN                          /00789001/ [Suspect]
     Indication: PRODUCT USED FOR UNKNOWN INDICATION
     Dosage: 1 DF, QD
     Route: 048
     Dates: start: 20140214
  3. PREVISCAN                          /00789001/ [Suspect]
     Dosage: .75 DF, QD
     Route: 048
     Dates: start: 20140216, end: 20140225
  4. PREVISCAN                          /00789001/ [Suspect]
     Dosage: 1 DF, QD
     Route: 048
     Dates: start: 20140226
  5. TAVANIC [Concomitant]
     Dosage: UNK
     Dates: start: 20140204, end: 20140222
  6. ROCEPHINE [Concomitant]
  7. DIFFU K [Concomitant]
  8. GABAPENTINE [Concomitant]
  9. PARACETAMOL [Concomitant]
  10. LASILIX [Concomitant]
  11. MECIR [Concomitant]

REACTIONS (1)
  - International normalised ratio increased [Recovered/Resolved]
